FAERS Safety Report 4655957-0 (Version None)
Quarter: 2005Q2

REPORT INFORMATION
  Report Type: 
  Country: None (occurrence: None)
  Receive Date: 20050506
  Receipt Date: 20050506
  Transmission Date: 20051028
  Serious: Yes (Hospitalization, Other)
  Sender: FDA-Public Use
  Company Number: None

PATIENT
  Sex: Male
  Weight: 108.4 kg

DRUGS (6)
  1. ALLOPURINOL [Suspect]
     Dosage: 300 MG PO QD ON DAYS 1-14
     Route: 048
     Dates: start: 20040617, end: 20041209
  2. CYCLOPHOSPHAMIDE [Suspect]
     Dosage: 1200 MG/M2 IV OVER 15-30 MIN ON DAY1
     Route: 042
  3. DAUNORUBICIN HCL [Suspect]
     Dosage: 80 MG/M2 DAY X 3 DAYS IV ON DAYS 1,2,3
     Route: 042
  4. VINCRISTINE [Suspect]
     Dosage: 2 MG IVP ON DAYS 1, 8, 15, 22
     Route: 042
  5. L-ASPARAGINASE [Suspect]
     Dosage: 5 MG/M2 PO BID DAYS 5,8, 11,15, 18, 22
     Route: 048
  6. G-CSF [Suspect]
     Dosage: 5 MCG/KG/DAY SC STARTING DAY 4 X 7 DAYS AND CONTINUING UNTIL ANC IS } 5000 MCL PRN
     Route: 058

REACTIONS (4)
  - BLOOD CULTURE POSITIVE [None]
  - ESCHERICHIA INFECTION [None]
  - PLATELET COUNT DECREASED [None]
  - WHITE BLOOD CELL COUNT DECREASED [None]
